FAERS Safety Report 20210808 (Version 2)
Quarter: 2022Q4

REPORT INFORMATION
  Report Type: Spontaneous
  Country: DE (occurrence: DE)
  Receive Date: 20211221
  Receipt Date: 20221024
  Transmission Date: 20230113
  Serious: Yes (Hospitalization)
  Sender: FDA-Public Use
  Company Number: DE-NOVARTISPH-NVSC2021DE286395

PATIENT
  Age: 72 Year
  Sex: Male
  Weight: 72 kg

DRUGS (6)
  1. ETOPOSIDE [Suspect]
     Active Substance: ETOPOSIDE
     Indication: Product used for unknown indication
     Dosage: UNK
     Route: 065
  2. CARBOPLATIN [Suspect]
     Active Substance: CARBOPLATIN
     Indication: Product used for unknown indication
     Dosage: UNK
     Route: 065
  3. TIMOLOL [Concomitant]
     Active Substance: TIMOLOL
     Indication: Product used for unknown indication
     Dosage: UNK (1.25 MG/0.5ML, 1-0-1-0, EINZELDOSISPIPETTEN)
  4. METAMIZOL [Concomitant]
     Active Substance: METAMIZOLE SODIUM
     Indication: Product used for unknown indication
     Dosage: 500 MILLIGRAM PER MILLILITRE, (20-20-20-20, TROPFEN)
     Route: 048
  5. ACLIDINIUM BROMIDE [Concomitant]
     Active Substance: ACLIDINIUM BROMIDE
     Indication: Product used for unknown indication
     Dosage: UNK, (400/12 ?G, 1-0-1-0, INHALATIONSPULVER)
  6. PILOCARPIN [Concomitant]
     Indication: Product used for unknown indication
     Dosage: 20 MILLIGRAM PER GRAM, TID, (TROPFEN)

REACTIONS (5)
  - Pain [Unknown]
  - Vascular device infection [Unknown]
  - Catheter site pain [Unknown]
  - Administration site discomfort [Unknown]
  - Application site erythema [Unknown]
